FAERS Safety Report 5727701-7 (Version None)
Quarter: 2008Q2

REPORT INFORMATION
  Report Type: 
  Country: None (occurrence: None)
  Receive Date: 20080505
  Receipt Date: 20080501
  Transmission Date: 20081010
  Serious: Yes (Death, Hospitalization, Other)
  Sender: FDA-Public Use
  Company Number: PHEH2007US13112

PATIENT
  Age: 63 Year
  Sex: Female
  Weight: 65.306 kg

DRUGS (13)
  1. LANOXIN [Concomitant]
  2. CLONIDINE HCL [Concomitant]
     Indication: HYPERTENSION
     Dosage: 0.2 MG, UNK
     Dates: start: 20070109
  3. VERELAN [Concomitant]
     Indication: HYPERTENSION
     Dosage: 200 MG, UNK
     Dates: start: 20070126
  4. COUMADIN [Concomitant]
     Indication: ATRIAL FIBRILLATION
     Dosage: 5 MG, UNK
     Dates: start: 20060915
  5. LASIX [Concomitant]
     Indication: CARDIAC FAILURE CONGESTIVE
     Dosage: 40 MG, UNK
  6. FOLIC ACID [Concomitant]
     Indication: CORONARY ARTERY DISEASE
     Dosage: 1 MG, UNK
  7. ALLOPURINOL [Concomitant]
     Indication: GOUT
     Dosage: 100 MG, UNK
  8. ASPIRIN [Concomitant]
     Indication: CORONARY ARTERY DISEASE
     Dosage: 81 MG, UNK
  9. SYNTHROID [Concomitant]
  10. LYRICA [Concomitant]
     Indication: NEUROPATHY PERIPHERAL
     Dosage: 75 MG, UNK
     Dates: start: 20061122
  11. TEKTURNA [Suspect]
     Indication: HYPERTENSION
     Dosage: 150 MG, QD
     Route: 048
     Dates: start: 20070510, end: 20070522
  12. MAGNESIUM [Concomitant]
     Dosage: 250 MG, QD
  13. DULCOLAX [Concomitant]
     Dosage: 100 UNK, QD
     Route: 048

REACTIONS (34)
  - ANAEMIA [None]
  - ANAEMIA VITAMIN B12 DEFICIENCY [None]
  - ARTHROPATHY [None]
  - BLISTER [None]
  - BLOOD CREATININE INCREASED [None]
  - BLOOD ERYTHROPOIETIN INCREASED [None]
  - BLOOD UREA INCREASED [None]
  - BREATH SOUNDS ABNORMAL [None]
  - CHRONIC OBSTRUCTIVE PULMONARY DISEASE [None]
  - DYSPNOEA [None]
  - ERYTHEMA [None]
  - FATIGUE [None]
  - HAEMATOCRIT DECREASED [None]
  - HAEMOGLOBIN DECREASED [None]
  - HYPERKALAEMIA [None]
  - INFLAMMATION [None]
  - OXYGEN SATURATION DECREASED [None]
  - PAIN IN EXTREMITY [None]
  - PLEURAL EFFUSION [None]
  - PNEUMONIA [None]
  - PULMONARY HYPERTENSION [None]
  - PULMONARY OEDEMA [None]
  - RASH PAPULAR [None]
  - RASH VESICULAR [None]
  - RENAL CYST [None]
  - RETICULOCYTE COUNT INCREASED [None]
  - SKIN DISCOLOURATION [None]
  - SKIN EXFOLIATION [None]
  - SWELLING [None]
  - THROMBOCYTOPENIA [None]
  - TRICUSPID VALVE INCOMPETENCE [None]
  - ULTRASOUND SCAN ABNORMAL [None]
  - VASCULITIS NECROTISING [None]
  - WHITE BLOOD CELL COUNT INCREASED [None]
